FAERS Safety Report 12286319 (Version 1)
Quarter: 2016Q2

REPORT INFORMATION
  Report Type: Spontaneous
  Country: US (occurrence: None)
  Receive Date: 20160419
  Receipt Date: 20160419
  Transmission Date: 20160815
  Serious: No
  Sender: FDA-Public Use
  Company Number: DL2016-0183

PATIENT
  Age: 31 Year
  Sex: Female

DRUGS (3)
  1. AZITHROMYCIN ANHYDROUS. [Concomitant]
     Active Substance: AZITHROMYCIN ANHYDROUS
  2. MIFEPRISTONE TABLETS, 200 MG (DANCO LABS) [Suspect]
     Active Substance: MIFEPRISTONE
     Indication: ABORTION INDUCED
     Dates: start: 20151014
  3. MISOPROSTOL TABLETS, 200MCG [Suspect]
     Active Substance: MISOPROSTOL
     Route: 002
     Dates: start: 20151015

REACTIONS (1)
  - Endometritis [None]

NARRATIVE: CASE EVENT DATE: 20151021
